FAERS Safety Report 8694574 (Version 6)
Quarter: 2014Q3

REPORT INFORMATION
  Report Type: Spontaneous
  Country: US (occurrence: US)
  Receive Date: 20120731
  Receipt Date: 20140724
  Transmission Date: 20150326
  Serious: Yes (Hospitalization, Other)
  Sender: FDA-Public Use
  Company Number: US-009507513-2011SP056192

PATIENT
  Sex: Female
  Weight: 79.37 kg

DRUGS (1)
  1. NUVARING [Suspect]
     Active Substance: ETHINYL ESTRADIOL\ETONOGESTREL
     Indication: CONTRACEPTION
     Dosage: UNK
     Dates: start: 200903, end: 20091225

REACTIONS (12)
  - Pre-eclampsia [Unknown]
  - Drug abuse [Unknown]
  - Cerebrovascular accident [Recovered/Resolved]
  - Hyperhomocysteinaemia [Unknown]
  - Sinus arrhythmia [Unknown]
  - Transient ischaemic attack [Unknown]
  - Embolism [Unknown]
  - Thrombosis [Unknown]
  - Ovarian cyst [Unknown]
  - Hypercoagulation [Unknown]
  - Ovarian cyst [Unknown]
  - Dyslipidaemia [Unknown]

NARRATIVE: CASE EVENT DATE: 2009
